FAERS Safety Report 5694161-4 (Version None)
Quarter: 2008Q2

REPORT INFORMATION
  Report Type: 
  Country: None (occurrence: None)
  Receive Date: 20080402
  Receipt Date: 20080327
  Transmission Date: 20081010
  Serious: Yes (Death)
  Sender: FDA-Public Use
  Company Number: CLOF-1000116

PATIENT
  Age: 14 Year
  Sex: Female
  Weight: 43.5 kg

DRUGS (22)
  1. CLOLAR [Suspect]
     Indication: ACUTE LYMPHOCYTIC LEUKAEMIA
     Dosage: 20 MG/M2, QDX5, INTRAVENOUS
     Route: 042
     Dates: start: 20080206, end: 20080210
  2. BUSULFAN (BUSULFAN) UNKNOWN [Suspect]
     Indication: ACUTE LYMPHOCYTIC LEUKAEMIA
     Dosage: 3.2 MG/KG, QD, INTRAVENOUS
     Route: 042
     Dates: start: 20080207, end: 20080210
  3. AMPICILINA SULBACTAM (AMPICILLIN SODIUM, SULBACTAM SODIUM) UNKNOWN [Concomitant]
  4. AZITHROMYCIN (AZITHROMYCIN) UNKNOWN [Concomitant]
  5. MICAFUNGIN (MICAFUNGIN) UNKNOWN [Concomitant]
  6. PHENYTOIN (PHENYTOIN) UNKNOWN [Concomitant]
  7. PHENYTOIN (PHENYTOIN) UNKNOWN [Concomitant]
  8. CYCLOSPORIN (CICLOSPORIN) EYE DROPS [Concomitant]
  9. DIPHENHYDRAMINE (AMMONIUM CHLORIDE, DIPHENHYDRAMINE, SODIUM CITRATE) [Concomitant]
  10. DIPHENHYDRAMINE (AMMONIUM CHLORIDE, DIPHENHYDRAMINE, SODIUM CITRATE) [Concomitant]
  11. FOSPHENYTOIN (FOSPHENYTOIN) UNKNOWN [Concomitant]
  12. MORPHINE [Concomitant]
  13. ONDANSETRON (ONDANSETRON) UNKNOWN [Concomitant]
  14. URSODIOL (URSODEOXYCHOLIC ACID) UNKNOWN [Concomitant]
  15. ACETAMINOPHEN [Concomitant]
  16. BENZONATATE (BENZONATATE) UNKNOWN [Concomitant]
  17. LORAZEPAM [Concomitant]
  18. PROMETHAZINE (PROMETHAZINE) UNKNOWN [Concomitant]
  19. DEXAMETHASONE (17A-ESTRADIOL) UNKNOWN [Concomitant]
  20. POTASSIUM IN SODIUM CHLORIDE (POTASSIUM CHLORIDE, SODIUM CHLORIDE) SOL [Concomitant]
  21. POTASSIUM IN SODIUM CHLORIDE (POTASSIUM CHLORIDE, SODIUM CHLORIDE) SOL [Concomitant]
  22. TACROLIMUS (TACROLIMUS) UNKNOWN [Concomitant]

REACTIONS (8)
  - ACUTE GRAFT VERSUS HOST DISEASE [None]
  - BRONCHOPULMONARY ASPERGILLOSIS [None]
  - GASTROINTESTINAL INFECTION [None]
  - GENERAL PHYSICAL HEALTH DETERIORATION [None]
  - HYPOXIA [None]
  - RESPIRATORY DISTRESS [None]
  - RESPIRATORY TRACT INFECTION [None]
  - URINARY TRACT INFECTION [None]
